FAERS Safety Report 7841553-0 (Version None)
Quarter: 2011Q4

REPORT INFORMATION
  Report Type: 
  Country: None (occurrence: None)
  Receive Date: 20111025
  Receipt Date: 20111014
  Transmission Date: 20120403
  Serious: Yes (Other)
  Sender: FDA-Public Use
  Company Number: FR-CELGENEUS-056-21880-11101742

PATIENT
  Sex: Male
  Weight: 89 kg

DRUGS (8)
  1. DOXORUBICIN HCL [Suspect]
     Indication: B-CELL LYMPHOMA
     Route: 041
     Dates: start: 20110201, end: 20110517
  2. RITUXIMAB [Suspect]
     Route: 041
     Dates: end: 20110901
  3. REVLIMID [Suspect]
     Indication: B-CELL LYMPHOMA
     Dosage: 25 MILLIGRAM
     Route: 048
     Dates: start: 20110201, end: 20110530
  4. CYCLOPHOSPHAMIDE [Suspect]
     Indication: B-CELL LYMPHOMA
     Route: 041
     Dates: start: 20110201, end: 20110517
  5. PREDNISOLONE [Suspect]
     Indication: B-CELL LYMPHOMA
     Route: 048
     Dates: start: 20110202, end: 20110521
  6. RITUXIMAB [Suspect]
     Indication: B-CELL LYMPHOMA
     Route: 041
     Dates: start: 20110201, end: 20110629
  7. VINCRISTINE [Suspect]
     Indication: B-CELL LYMPHOMA
     Route: 041
     Dates: start: 20110201, end: 20110517
  8. METHYLPREDNISOLONE [Suspect]
     Indication: B-CELL LYMPHOMA
     Route: 041
     Dates: start: 20110201, end: 20110517

REACTIONS (1)
  - TONSIL CANCER [None]
